FAERS Safety Report 25126525 (Version 2)
Quarter: 2025Q2

REPORT INFORMATION
  Report Type: Spontaneous
  Country: JP (occurrence: JP)
  Receive Date: 20250327
  Receipt Date: 20250414
  Transmission Date: 20250717
  Serious: Yes (Hospitalization, Other)
  Sender: TAKEDA
  Company Number: JP-TAKEDA-2025TJP003165

PATIENT
  Age: 77 Year
  Sex: Female
  Weight: 31 kg

DRUGS (5)
  1. TRINTELLIX [Suspect]
     Active Substance: VORTIOXETINE HYDROBROMIDE
     Indication: Depression
     Dosage: 10 MILLIGRAM, QD
     Dates: start: 20250206, end: 20250213
  2. TRINTELLIX [Suspect]
     Active Substance: VORTIOXETINE HYDROBROMIDE
     Dosage: 20 MILLIGRAM, QD
     Dates: start: 20250214, end: 20250312
  3. TRINTELLIX [Suspect]
     Active Substance: VORTIOXETINE HYDROBROMIDE
  4. ZYPREXA [Suspect]
     Active Substance: OLANZAPINE
     Indication: Depression
     Dosage: 2.5 MILLIGRAM, QD
     Dates: start: 20250205
  5. BROTIZOLAM [Concomitant]
     Active Substance: BROTIZOLAM

REACTIONS (1)
  - Inappropriate antidiuretic hormone secretion [Recovering/Resolving]

NARRATIVE: CASE EVENT DATE: 20250304
